FAERS Safety Report 10384216 (Version 1)
Quarter: 2014Q3

REPORT INFORMATION
  Report Type: Not Available
  Country: US (occurrence: US)
  Receive Date: 20140814
  Receipt Date: 20140814
  Transmission Date: 20150326
  Serious: No
  Sender: FDA-Public Use
  Company Number: US-LUPIN PHARMACEUTICALS INC.-E2B_00002213

PATIENT
  Age: 63 Year
  Sex: Male
  Weight: 33.14 kg

DRUGS (1)
  1. LISINOPRIL TABLETS USP 10MG [Suspect]
     Active Substance: LISINOPRIL
     Indication: OFF LABEL USE
     Dates: start: 20140312

REACTIONS (5)
  - Off label use [Unknown]
  - Cough [Not Recovered/Not Resolved]
  - Blood pressure decreased [Unknown]
  - Dizziness postural [Not Recovered/Not Resolved]
  - Fall [Unknown]

NARRATIVE: CASE EVENT DATE: 20140312
